FAERS Safety Report 7512624-3 (Version None)
Quarter: 2011Q2

REPORT INFORMATION
  Report Type: 
  Country: None (occurrence: None)
  Receive Date: 20110531
  Receipt Date: 20110525
  Transmission Date: 20111010
  Serious: Yes (Other)
  Sender: FDA-Public Use
  Company Number: GR-ROCHE-779558

PATIENT
  Age: 40 Year
  Sex: Male

DRUGS (2)
  1. PEGASYS [Suspect]
     Indication: HEPATITIS C
     Dosage: ONCE WEEKLY
     Route: 042
     Dates: start: 20080501, end: 20091001
  2. REBETOL [Suspect]
     Indication: HEPATITIS C
     Dosage: DAILY
     Route: 048
     Dates: start: 20080501, end: 20091001

REACTIONS (8)
  - ALOPECIA [None]
  - RASH [None]
  - ARRHYTHMIA [None]
  - PSYCHOTIC DISORDER [None]
  - PRURITUS [None]
  - NEUTROPENIA [None]
  - SUPRAVENTRICULAR EXTRASYSTOLES [None]
  - LIBIDO DECREASED [None]
